FAERS Safety Report 14424496 (Version 1)
Quarter: 2018Q1

REPORT INFORMATION
  Report Type: Spontaneous
  Country: GB (occurrence: GB)
  Receive Date: 20180123
  Receipt Date: 20180123
  Transmission Date: 20180509
  Serious: Yes (Hospitalization)
  Sender: FDA-Public Use
  Company Number: GB-TEVA-2018-GB-848819

PATIENT
  Age: 28 Year
  Sex: Female
  Weight: 68 kg

DRUGS (5)
  1. LANSOPRAZOLE. [Suspect]
     Active Substance: LANSOPRAZOLE
     Indication: DYSPEPSIA
     Dosage: 30 MILLIGRAM DAILY;
     Route: 048
  2. SERTRALINE [Suspect]
     Active Substance: SERTRALINE HYDROCHLORIDE
     Indication: DEPRESSION
     Dosage: 50 MILLIGRAM DAILY;
     Route: 048
  3. THIAMINE. [Concomitant]
     Active Substance: THIAMINE
     Dosage: 200 MILLIGRAM DAILY;
  4. CYCLIZINE [Concomitant]
     Active Substance: CYCLIZINE
     Dosage: 150 MILLIGRAM DAILY;
  5. LACTULOSE. [Concomitant]
     Active Substance: LACTULOSE
     Dosage: 60 ML DAILY;

REACTIONS (2)
  - Hyponatraemia [Recovering/Resolving]
  - Fall [Recovering/Resolving]
